FAERS Safety Report 14152446 (Version 1)
Quarter: 2017Q4

REPORT INFORMATION
  Report Type: Spontaneous
  Country: US (occurrence: US)
  Receive Date: 20171102
  Receipt Date: 20171102
  Transmission Date: 20180321
  Serious: Yes (Other)
  Sender: FDA-Public Use
  Company Number: US-BAYER-2017-203226

PATIENT
  Age: 68 Year
  Sex: Female

DRUGS (1)
  1. DR. SCHOLLS INGROWN TOENAIL PAIN RELIEVER [Suspect]
     Active Substance: SODIUM SULFIDE
     Dosage: UNK, ONCE
     Route: 061

REACTIONS (3)
  - Wound secretion [Recovering/Resolving]
  - Application site pain [Recovering/Resolving]
  - Toxicity to various agents [Unknown]

NARRATIVE: CASE EVENT DATE: 201709
